FAERS Safety Report 15399288 (Version 6)
Quarter: 2018Q4

REPORT INFORMATION
  Report Type: Spontaneous
  Country: US (occurrence: US)
  Receive Date: 20180918
  Receipt Date: 20181210
  Transmission Date: 20190204
  Serious: Yes (Life-Threatening, Hospitalization, Other)
  Sender: FDA-Public Use
  Company Number: US-ACTELION-A-NJ2018-178742

PATIENT
  Age: 84 Year
  Sex: Female

DRUGS (16)
  1. METOLAZONE. [Concomitant]
     Active Substance: METOLAZONE
     Dosage: 2.5 MG, QD
     Dates: start: 20180716
  2. METOPROLOL. [Concomitant]
     Active Substance: METOPROLOL
  3. CLONAZEPAM. [Concomitant]
     Active Substance: CLONAZEPAM
     Dosage: 0.5 MG, PRN
  4. PROAIR HFA [Concomitant]
     Active Substance: ALBUTEROL SULFATE
  5. TRAVATAN [Concomitant]
     Active Substance: TRAVOPROST
  6. LISINOPRIL. [Concomitant]
     Active Substance: LISINOPRIL
     Dosage: 2.5 MG, QD
  7. SILDENAFIL. [Concomitant]
     Active Substance: SILDENAFIL
     Dosage: 20 MG, TID
     Route: 048
  8. FLOVENT [Concomitant]
     Active Substance: FLUTICASONE PROPIONATE
     Dosage: 1 PUFF, BID
  9. DIGOXIN. [Concomitant]
     Active Substance: DIGOXIN
     Dosage: 25 MG, QD
  10. TRIMETHOPRIM. [Concomitant]
     Active Substance: TRIMETHOPRIM
  11. ACETAMINOPHEN. [Concomitant]
     Active Substance: ACETAMINOPHEN
     Dosage: 1000 MG, QD
  12. TORSEMIDE. [Concomitant]
     Active Substance: TORSEMIDE
     Dosage: 20 MG, QD
  13. ELIQUIS [Concomitant]
     Active Substance: APIXABAN
     Dosage: 2.5 MG, BID
  14. SIMVASTATIN. [Concomitant]
     Active Substance: SIMVASTATIN
     Dosage: 20 MG, QD
  15. OPSUMIT [Suspect]
     Active Substance: MACITENTAN
     Indication: PULMONARY HYPERTENSION
     Dosage: 10 MG, QD
     Route: 048
     Dates: start: 20180825, end: 20181020
  16. LANOXIN [Concomitant]
     Active Substance: DIGOXIN
     Dosage: 62.5 MCG, UNK

REACTIONS (15)
  - Dyspnoea [Recovering/Resolving]
  - Anaemia [Recovered/Resolved]
  - Somnolence [Not Recovered/Not Resolved]
  - Haemoglobin decreased [Recovered/Resolved]
  - Joint swelling [Recovered/Resolved]
  - Blood count abnormal [Recovered/Resolved]
  - Malaise [Not Recovered/Not Resolved]
  - Echocardiogram abnormal [Unknown]
  - Therapy non-responder [Unknown]
  - Cardiac failure [Unknown]
  - Pulmonary arterial pressure abnormal [Unknown]
  - Atrial fibrillation [Unknown]
  - Fluid retention [Recovering/Resolving]
  - Feeling abnormal [Not Recovered/Not Resolved]
  - Haematochezia [Not Recovered/Not Resolved]

NARRATIVE: CASE EVENT DATE: 20180904
